FAERS Safety Report 12931581 (Version 3)
Quarter: 2018Q4

REPORT INFORMATION
  Report Type: Report from Study
  Country: US (occurrence: US)
  Receive Date: 20161110
  Receipt Date: 20181123
  Transmission Date: 20190204
  Serious: No
  Sender: FDA-Public Use
  Company Number: PHEH2016US029468

PATIENT
  Age: 2 Year
  Sex: Female
  Weight: 12.27 kg

DRUGS (3)
  1. KINERET [Concomitant]
     Active Substance: ANAKINRA
     Indication: TUMOUR NECROSIS FACTOR RECEPTOR-ASSOCIATED PERIODIC SYNDROME
     Dosage: 0.15 ML (100 MG/0.67 ML), QD
     Route: 058
     Dates: start: 20161030
  2. ILARIS [Suspect]
     Active Substance: CANAKINUMAB
     Indication: CRYOPYRIN ASSOCIATED PERIODIC SYNDROME
     Dosage: 60 MG, EVERY 4 WEEKS (EVERY 28 DAYS)
     Route: 058
     Dates: start: 20161119
  3. ILARIS [Suspect]
     Active Substance: CANAKINUMAB
     Indication: TUMOUR NECROSIS FACTOR RECEPTOR-ASSOCIATED PERIODIC SYNDROME
     Dosage: 30 MG, EVERY 4 WEEKS
     Route: 058
     Dates: start: 20161026, end: 20161028

REACTIONS (4)
  - Pyrexia [Recovered/Resolved]
  - Pain [Recovered/Resolved]
  - Constipation [Unknown]
  - Anal incontinence [Unknown]

NARRATIVE: CASE EVENT DATE: 20161026
